FAERS Safety Report 10415296 (Version 1)
Quarter: 2014Q3

REPORT INFORMATION
  Report Type: Spontaneous
  Country: US (occurrence: US)
  Receive Date: 20140828
  Receipt Date: 20140828
  Transmission Date: 20150326
  Serious: No
  Sender: FDA-Public Use
  Company Number: US-BAYER-2014-127833

PATIENT
  Age: 56 Year
  Sex: Male
  Weight: 63.49 kg

DRUGS (5)
  1. ALEVE [Suspect]
     Active Substance: NAPROXEN SODIUM
     Indication: BACK PAIN
  2. ALEVE [Suspect]
     Active Substance: NAPROXEN SODIUM
     Indication: ANALGESIC THERAPY
     Dosage: 1 DF, OTHER
     Route: 048
     Dates: start: 2007
  3. OMEPRAZOLE. [Concomitant]
     Active Substance: OMEPRAZOLE
     Dosage: UNK UNK, UNK
  4. FEXOFENADINE [Concomitant]
     Active Substance: FEXOFENADINE\FEXOFENADINE HYDROCHLORIDE
     Dosage: UNK UNK, UNK
  5. PRAVASTATIN [Concomitant]
     Active Substance: PRAVASTATIN\PRAVASTATIN SODIUM
     Dosage: UNK UNK, UNK

REACTIONS (2)
  - Drug ineffective [None]
  - Incorrect drug administration duration [None]

NARRATIVE: CASE EVENT DATE: 201406
